FAERS Safety Report 13792218 (Version 1)
Quarter: 2017Q3

REPORT INFORMATION
  Report Type: Other
  Country: US (occurrence: US)
  Receive Date: 20170725
  Receipt Date: 20170725
  Transmission Date: 20171127
  Serious: Yes (Other)
  Sender: FDA-Public Use
  Company Number: US-RARE DISEASE THERAPEUTICS, INC.-2023771

PATIENT
  Age: 9 Year
  Sex: Female

DRUGS (4)
  1. PURIXAN [Suspect]
     Active Substance: MERCAPTOPURINE
     Indication: ACUTE LYMPHOCYTIC LEUKAEMIA
     Route: 048
  2. METHOTREXATE. [Suspect]
     Active Substance: METHOTREXATE
  3. DEXAMETHASONE. [Suspect]
     Active Substance: DEXAMETHASONE
  4. VINCRISTINE SULFATE. [Suspect]
     Active Substance: VINCRISTINE SULFATE
     Route: 042

REACTIONS (1)
  - Hypoglycaemia [Recovering/Resolving]
